FAERS Safety Report 6446703-9 (Version None)
Quarter: 2009Q4

REPORT INFORMATION
  Report Type: 
  Country: None (occurrence: None)
  Receive Date: 20091119
  Receipt Date: 20091113
  Transmission Date: 20100525
  Serious: Yes (Life-Threatening, Hospitalization)
  Sender: FDA-Public Use
  Company Number: B0596203A

PATIENT
  Sex: Male

DRUGS (1)
  1. RELENZA [Suspect]
     Dosage: 5MG PER DAY
     Route: 055
     Dates: start: 20091001, end: 20091001

REACTIONS (7)
  - ABDOMINAL PAIN [None]
  - ANAPHYLACTIC SHOCK [None]
  - BLOOD PRESSURE DECREASED [None]
  - GAIT DISTURBANCE [None]
  - RASH [None]
  - URTICARIA [None]
  - VOMITING [None]
